FAERS Safety Report 5182929-2 (Version None)
Quarter: 2006Q4

REPORT INFORMATION
  Report Type: 
  Country: None (occurrence: None)
  Receive Date: 20061212
  Receipt Date: 20061204
  Transmission Date: 20070319
  Serious: Yes (Other)
  Sender: FDA-Public Use
  Company Number: 2006126039

PATIENT
  Age: 68 Year
  Sex: Female
  Weight: 64.4108 kg

DRUGS (1)
  1. XALATAN [Suspect]
     Indication: INTRAOCULAR PRESSURE INCREASED
     Dosage: ONE DROP IN EACH EYE (1 IN 1 D), OPHTHALMIC
     Route: 047
     Dates: start: 20061005

REACTIONS (6)
  - CATARACT OPERATION [None]
  - CATARACT OPERATION COMPLICATION [None]
  - CHOLELITHIASIS [None]
  - CHROMATURIA [None]
  - INFLUENZA LIKE ILLNESS [None]
  - SKIN DISCOLOURATION [None]
